FAERS Safety Report 5494110-8 (Version None)
Quarter: 2007Q4

REPORT INFORMATION
  Report Type: 
  Country: None (occurrence: None)
  Receive Date: 20071022
  Receipt Date: 20071016
  Transmission Date: 20080405
  Serious: Yes (Death)
  Sender: FDA-Public Use
  Company Number: 163-20785-07081172

PATIENT
  Sex: Male

DRUGS (1)
  1. THALOMID [Suspect]
     Indication: MULTIPLE MYELOMA
     Dosage: 200 MG, 1 IN 1 D, ORAL
     Route: 048
     Dates: start: 20061201, end: 20070101

REACTIONS (5)
  - COMPLICATIONS OF TRANSPLANT SURGERY [None]
  - ORGAN FAILURE [None]
  - SEPSIS [None]
  - STEM CELL TRANSPLANT [None]
  - STOMACH DISCOMFORT [None]
